FAERS Safety Report 14097578 (Version 1)
Quarter: 2017Q4

REPORT INFORMATION
  Report Type: Spontaneous
  Country: US (occurrence: US)
  Receive Date: 20171016
  Receipt Date: 20171016
  Transmission Date: 20180321
  Serious: No
  Sender: FDA-Public Use
  Company Number: US-AMGEN-USASP2016183889

PATIENT
  Age: 74 Year
  Sex: Female

DRUGS (7)
  1. PROLIA [Suspect]
     Active Substance: DENOSUMAB
     Indication: OSTEOPOROSIS POSTMENOPAUSAL
     Dosage: 60 MG, Q6MO
     Route: 065
     Dates: start: 201601
  2. LISINOPRIL. [Concomitant]
     Active Substance: LISINOPRIL
  3. ZOCOR [Concomitant]
     Active Substance: SIMVASTATIN
  4. CALCIUM WITH VITAMIN D3 [Concomitant]
     Active Substance: CALCIUM CARBONATE\CHOLECALCIFEROL
     Dosage: 500 UNIT, BID
  5. POTASSIUM [Concomitant]
     Active Substance: POTASSIUM
  6. METFORMIN [Concomitant]
     Active Substance: METFORMIN HYDROCHLORIDE
     Indication: GLUCOSE TOLERANCE IMPAIRED
  7. NIACIN. [Concomitant]
     Active Substance: NIACIN

REACTIONS (6)
  - Skin disorder [Unknown]
  - Pain in jaw [Unknown]
  - Limb discomfort [Unknown]
  - Dry skin [Unknown]
  - Vitamin D decreased [Recovering/Resolving]
  - Skin wrinkling [Unknown]
